FAERS Safety Report 4923934-8 (Version None)
Quarter: 2006Q1

REPORT INFORMATION
  Report Type: 
  Country: None (occurrence: None)
  Receive Date: 20060227
  Receipt Date: 20050617
  Transmission Date: 20060701
  Serious: Yes (Death, Hospitalization, Other)
  Sender: FDA-Public Use
  Company Number: US-MERCK-0506USA02808

PATIENT
  Age: 58 Year
  Sex: Female
  Weight: 70 kg

DRUGS (10)
  1. VIOXX [Suspect]
     Indication: ARTHRITIS
     Route: 048
     Dates: start: 20020201, end: 20040102
  2. LIPITOR [Concomitant]
     Route: 065
  3. PREDNISONE [Concomitant]
     Route: 065
  4. PREVACID [Concomitant]
     Route: 065
  5. AZMACORT [Concomitant]
     Route: 065
  6. SEREVENT [Concomitant]
     Route: 065
  7. CHLOR-TRIMETON [Concomitant]
     Route: 065
  8. METHOTREXATE [Concomitant]
     Route: 065
  9. FOLIC ACID [Concomitant]
     Route: 065
  10. FOSAMAX [Concomitant]
     Route: 065

REACTIONS (2)
  - MYOCARDIAL INFARCTION [None]
  - SUDDEN DEATH [None]
